FAERS Safety Report 10187095 (Version 1)
Quarter: 2014Q2

REPORT INFORMATION
  Report Type: Report from Study
  Country: DE (occurrence: DE)
  Receive Date: 20140522
  Receipt Date: 20140522
  Transmission Date: 20141212
  Serious: Yes (Other)
  Sender: FDA-Public Use
  Company Number: DE-ROCHE-1399757

PATIENT
  Sex: 0

DRUGS (5)
  1. RIBAVIRIN [Suspect]
     Indication: HEPATITIS C
     Dosage: 1000-1200 MG (BASED ON BODY WEIGHT)
     Route: 048
  2. ABT-450 (HCV PROTEASE INHIBITOR) [Suspect]
     Indication: HEPATITIS C
     Route: 048
  3. RITONAVIR [Suspect]
     Indication: HEPATITIS C
     Route: 048
  4. ABT-267 (HCV NS5A INHIBITOR) [Suspect]
     Indication: HEPATITIS C
     Route: 048
  5. ABT-333 (HCV POLYMERASE INHIBITOR) [Suspect]
     Indication: HEPATITIS C
     Route: 048

REACTIONS (7)
  - Chronic obstructive pulmonary disease [Unknown]
  - Pneumonia [Unknown]
  - Intestinal obstruction [Unknown]
  - Alanine aminotransferase increased [Unknown]
  - Aspartate aminotransferase increased [Unknown]
  - Blood bilirubin increased [Recovered/Resolved]
  - Haemoglobin decreased [Unknown]
